FAERS Safety Report 20383680 (Version 1)
Quarter: 2022Q1

REPORT INFORMATION
  Report Type: Spontaneous
  Country: US (occurrence: None)
  Receive Date: 20220127
  Receipt Date: 20220127
  Transmission Date: 20220424
  Serious: Yes (Hospitalization)
  Sender: FDA-Public Use
  Company Number: None

PATIENT
  Sex: Male

DRUGS (1)
  1. TALTZ [Suspect]
     Active Substance: IXEKIZUMAB
     Indication: Psoriasis
     Dosage: 80MG EVERY 4 WEEKS SUB-Q?
     Route: 058
     Dates: start: 202106

REACTIONS (4)
  - Psoriasis [None]
  - Infection [None]
  - Staphylococcal infection [None]
  - Therapy non-responder [None]
